FAERS Safety Report 6124043-5 (Version None)
Quarter: 2009Q1

REPORT INFORMATION
  Report Type: 
  Country: None (occurrence: None)
  Receive Date: 20090319
  Receipt Date: 20090310
  Transmission Date: 20090719
  Serious: Yes (Other)
  Sender: FDA-Public Use
  Company Number: PHHY2009KR08884

PATIENT
  Sex: Male

DRUGS (1)
  1. STALEVO 100 [Suspect]
     Dosage: 1 DF, QD
     Route: 048

REACTIONS (5)
  - ASTHENIA [None]
  - CHROMATURIA [None]
  - NAUSEA [None]
  - NEURALGIA [None]
  - WEIGHT DECREASED [None]
